FAERS Safety Report 4394839-9 (Version None)
Quarter: 2004Q3

REPORT INFORMATION
  Report Type: 
  Country: None (occurrence: None)
  Receive Date: 20040707
  Receipt Date: 20040616
  Transmission Date: 20050211
  Serious: Yes (Hospitalization)
  Sender: FDA-Public Use
  Company Number: 2004SE03444

PATIENT
  Age: 32 Year
  Sex: Male

DRUGS (3)
  1. XYLOCAINE [Suspect]
     Indication: LOCAL ANAESTHESIA
  2. PROZAC [Concomitant]
  3. TAHOR [Concomitant]

REACTIONS (7)
  - CARDIAC ARREST [None]
  - COMA [None]
  - CONVULSION [None]
  - NO REACTION ON PREVIOUS EXPOSURE TO DRUG [None]
  - PARAESTHESIA ORAL [None]
  - PHARYNGEAL HYPOAESTHESIA [None]
  - TINNITUS [None]
